FAERS Safety Report 9553443 (Version 1)
Quarter: 2013Q3

REPORT INFORMATION
  Report Type: Spontaneous
  Country: US (occurrence: None)
  Receive Date: 20130724
  Receipt Date: 20130724
  Transmission Date: 20140515
  Serious: Yes (Disabling)
  Sender: FDA-Public Use
  Company Number: PHEH2012US010518

PATIENT
  Age: 85 Year
  Sex: Female
  Weight: 76.6 kg

DRUGS (9)
  1. RECLAST (ZOLEDRONATE) SOLUTION FOR INJECTION [Suspect]
     Dosage: 5 MG, YEARLY, INTRAVENOUS
     Route: 042
     Dates: start: 20100614
  2. LISINOPRIL [Concomitant]
  3. VITAMIN B12 (CYANOCOBALAMIN) [Concomitant]
  4. VITAMIN C [Concomitant]
  5. VITAMIN D (ERGOCALCIFEROL) [Concomitant]
  6. NORVAS (AMLODIPINE BESILATE) [Concomitant]
  7. OMEGA 3 (FISH OIL) [Concomitant]
  8. TRAMADOL [Concomitant]
  9. LORTAB (HYDROCODONE BITARTRATE, PARACETAMOL) [Concomitant]

REACTIONS (4)
  - Influenza like illness [None]
  - Pyrexia [None]
  - Pain [None]
  - Bone pain [None]
